FAERS Safety Report 7481995-9 (Version None)
Quarter: 2011Q2

REPORT INFORMATION
  Report Type: 
  Country: None (occurrence: None)
  Receive Date: 20110516
  Receipt Date: 20110511
  Transmission Date: 20111010
  Serious: Yes (Other)
  Sender: FDA-Public Use
  Company Number: PR-ABBOTT-11P-131-0714417-00

PATIENT
  Sex: Female
  Weight: 51.756 kg

DRUGS (3)
  1. HUMIRA [Suspect]
     Indication: RHEUMATOID ARTHRITIS
     Route: 058
     Dates: start: 20110313, end: 20110401
  2. ALBUTEROL [Concomitant]
     Indication: ASTHMA
     Dosage: NEBULIZER
  3. ADVAIR DISKUS 100/50 [Concomitant]
     Indication: ASTHMA
     Dosage: 250/50
     Route: 055

REACTIONS (7)
  - INJECTION SITE PAIN [None]
  - HEADACHE [None]
  - CONVULSION [None]
  - DYSSTASIA [None]
  - LIMB DISCOMFORT [None]
  - GAIT DISTURBANCE [None]
  - PAIN [None]
